FAERS Safety Report 8535466-9 (Version None)
Quarter: 2012Q3

REPORT INFORMATION
  Report Type: 
  Country: None (occurrence: None)
  Receive Date: 20120725
  Receipt Date: 20120716
  Transmission Date: 20120928
  Serious: Yes (Other)
  Sender: FDA-Public Use
  Company Number: GB-SP-2012-05754

PATIENT
  Age: 80 Year
  Sex: Male

DRUGS (1)
  1. IMMUCYST [Suspect]
     Indication: BLADDER CANCER
     Route: 043

REACTIONS (12)
  - ERYTHRODERMIC PSORIASIS [None]
  - ERYTHEMA [None]
  - RASH PUSTULAR [None]
  - MALAISE [None]
  - PAPULE [None]
  - WEIGHT DECREASED [None]
  - HYPERKERATOSIS PALMARIS AND PLANTARIS [None]
  - PULMONARY TUBERCULOSIS [None]
  - PYREXIA [None]
  - BOVINE TUBERCULOSIS [None]
  - SEBORRHOEIC DERMATITIS [None]
  - PITYRIASIS RUBRA PILARIS [None]
